FAERS Safety Report 12297166 (Version 2)
Quarter: 2016Q2

REPORT INFORMATION
  Report Type: Spontaneous
  Country: US (occurrence: US)
  Receive Date: 20160422
  Receipt Date: 20160518
  Transmission Date: 20160815
  Serious: Yes (Death, Other)
  Sender: FDA-Public Use
  Company Number: US-ASTELLAS-2016US015701

PATIENT

DRUGS (1)
  1. CRESEMBA [Suspect]
     Active Substance: ISAVUCONAZONIUM SULFATE
     Indication: PNEUMONIA
     Dosage: 372 MG, ONCE DAILY (EVERY 24 HOUR)
     Route: 042

REACTIONS (2)
  - Malaise [Recovered/Resolved]
  - Breast cancer metastatic [Fatal]
